FAERS Safety Report 14081188 (Version 5)
Quarter: 2018Q3

REPORT INFORMATION
  Report Type: Spontaneous
  Country: ES (occurrence: ES)
  Receive Date: 20171012
  Receipt Date: 20180920
  Transmission Date: 20181010
  Serious: Yes (Death, Hospitalization)
  Sender: FDA-Public Use
  Company Number: ES-JNJFOC-20171010565

PATIENT
  Age: 72 Year
  Sex: Female

DRUGS (10)
  1. POLARAMINE [Concomitant]
     Active Substance: DEXCHLORPHENIRAMINE MALEATE
     Indication: PREMEDICATION
     Dosage: 1 AMPOULE ONE HOUR BEFORE
     Dates: end: 20170828
  2. METHYLPREDNISOLONE. [Concomitant]
     Active Substance: METHYLPREDNISOLONE
     Indication: PREMEDICATION
     Route: 042
  3. DARATUMUMAB [Suspect]
     Active Substance: DARATUMUMAB
     Indication: PLASMA CELL MYELOMA
     Route: 042
     Dates: start: 20170825
  4. PARACETAMOL [Concomitant]
     Active Substance: ACETAMINOPHEN
     Indication: PREMEDICATION
     Dosage: DOSING FREQUENCY: ONE HOUR BEFORE
  5. DUROGESIC [Concomitant]
     Active Substance: FENTANYL
  6. MORPHINE [Concomitant]
     Active Substance: MORPHINE
     Indication: BACK PAIN
     Dosage: PATCH
  7. CALCIOVIT [Concomitant]
     Indication: MINERAL SUPPLEMENTATION
  8. ACYCLOVIR. [Concomitant]
     Active Substance: ACYCLOVIR
     Indication: PREMEDICATION
  9. MORPHINE [Concomitant]
     Active Substance: MORPHINE
     Indication: PAIN
     Dosage: PATCH
  10. ORFIDAL [Concomitant]
     Active Substance: LORAZEPAM
     Dates: end: 20170906

REACTIONS (11)
  - Infusion related reaction [Recovered/Resolved]
  - Urinary tract infection [Unknown]
  - Eating disorder [Unknown]
  - Rash [Recovered/Resolved]
  - Oxygen saturation decreased [Unknown]
  - Hypertension [Unknown]
  - Dyspnoea [Unknown]
  - Somnolence [Recovered/Resolved]
  - Pneumocystis jirovecii infection [Unknown]
  - Death [Fatal]
  - Autoimmune hypothyroidism [Unknown]

NARRATIVE: CASE EVENT DATE: 20170101
